FAERS Safety Report 9465636 (Version 2)
Quarter: 2013Q4

REPORT INFORMATION
  Report Type: Report from Study
  Country: CA (occurrence: CA)
  Receive Date: 20130820
  Receipt Date: 20131024
  Transmission Date: 20140711
  Serious: Yes (Hospitalization)
  Sender: FDA-Public Use
  Company Number: CA-SANOFI-AVENTIS-2013SA081241

PATIENT
  Sex: Male

DRUGS (17)
  1. ENOXAPARIN SODIUM [Suspect]
     Indication: EMBOLISM
     Route: 058
     Dates: start: 20120105, end: 20120109
  2. PLACEBO [Suspect]
     Indication: EMBOLISM
     Dosage: THERAPY STOP DATE-2012
     Route: 048
     Dates: start: 20120105
  3. APIXABAN [Suspect]
     Indication: EMBOLISM
     Route: 048
     Dates: start: 20120105, end: 20120511
  4. WARFARIN SODIUM [Suspect]
     Indication: EMBOLISM
     Route: 048
     Dates: start: 20120105, end: 20120511
  5. ACETAMINOPHEN [Concomitant]
  6. CYANOCOBALAMIN [Concomitant]
  7. GLUCOSAMINE SULFATE [Concomitant]
  8. INDOMETHACIN [Concomitant]
  9. PYGEUM AFRICANUM [Concomitant]
  10. SAW PALMETTO [Concomitant]
  11. TYLENOL W/CODEINE NO. 3 [Concomitant]
  12. PREPARATION H CREAM [Concomitant]
  13. MAGNESIUM CITRATE [Concomitant]
  14. VITAMIN B6 [Concomitant]
  15. VITAMIN C [Concomitant]
  16. VITAMIN D [Concomitant]
  17. ZINC [Concomitant]

REACTIONS (2)
  - Urinary tract infection [Recovered/Resolved]
  - Gastric ulcer haemorrhage [Recovered/Resolved]
